FAERS Safety Report 18144736 (Version 1)
Quarter: 2020Q3

REPORT INFORMATION
  Report Type: Spontaneous
  Country: US (occurrence: US)
  Receive Date: 20200812
  Receipt Date: 20200812
  Transmission Date: 20201103
  Serious: No
  Sender: FDA-Public Use
  Company Number: None

PATIENT
  Age: 66 Year
  Sex: Female

DRUGS (1)
  1. ENBREL [Suspect]
     Active Substance: ETANERCEPT
     Indication: RHEUMATOID ARTHRITIS
     Dosage: ONCE WEEKLY USING THE AUTO
     Route: 058
     Dates: start: 201902

REACTIONS (4)
  - Ear infection [None]
  - Therapy interrupted [None]
  - Pharyngitis [None]
  - Sinusitis [None]
